FAERS Safety Report 9742183 (Version 1)
Quarter: 2013Q4

REPORT INFORMATION
  Report Type: Spontaneous
  Country: US (occurrence: US)
  Receive Date: 20131210
  Receipt Date: 20131210
  Transmission Date: 20140711
  Serious: Yes (Death)
  Sender: FDA-Public Use
  Company Number: US-SA-2013SA127565

PATIENT
  Sex: 0

DRUGS (1)
  1. LANTUS [Suspect]
     Route: 065

REACTIONS (2)
  - Death [Fatal]
  - Expired drug administered [Unknown]
